FAERS Safety Report 6473289-5 (Version None)
Quarter: 2009Q4

REPORT INFORMATION
  Report Type: 
  Country: None (occurrence: None)
  Receive Date: 20091204
  Receipt Date: 20080828
  Transmission Date: 20100525
  Serious: Yes (Hospitalization)
  Sender: FDA-Public Use
  Company Number: FR-ELI_LILLY_AND_COMPANY-FR200805004212

PATIENT
  Age: 58 Year
  Sex: Female
  Weight: 64 kg

DRUGS (11)
  1. FORTEO [Suspect]
     Indication: OSTEOPOROSIS
     Dosage: 20 UG, DAILY (1/D)
     Route: 058
     Dates: start: 20080325
  2. ISOPTIN [Concomitant]
     Dosage: UNK, UNKNOWN
     Route: 065
  3. PLAVIX [Concomitant]
     Dosage: UNK, UNKNOWN
     Route: 065
  4. DEROXAT [Concomitant]
     Indication: DEPRESSION
     Dosage: UNK, UNKNOWN
     Route: 048
  5. TORENTAL [Concomitant]
     Indication: ARTERIAL DISORDER
     Dosage: UNK, UNKNOWN
     Route: 048
  6. BRONCHODUAL [Concomitant]
     Dosage: UNK, UNKNOWN
     Route: 065
  7. CONTRAMAL [Concomitant]
     Dosage: UNK, UNKNOWN
     Route: 065
  8. AOTAL [Concomitant]
     Indication: ALCOHOLISM
     Dosage: UNK, UNKNOWN
     Route: 065
  9. ZOLPIDEM [Concomitant]
     Indication: DEPRESSION
     Dosage: UNK, UNKNOWN
     Route: 048
  10. BRICANYL [Concomitant]
     Indication: CHRONIC OBSTRUCTIVE PULMONARY DISEASE
     Dosage: UNK, UNKNOWN
     Route: 048
  11. ATROVENT [Concomitant]
     Indication: CHRONIC OBSTRUCTIVE PULMONARY DISEASE
     Dosage: UNK, UNKNOWN
     Route: 055

REACTIONS (2)
  - EMPHYSEMA [None]
  - RESPIRATORY FAILURE [None]
